FAERS Safety Report 5558227-1 (Version None)
Quarter: 2007Q4

REPORT INFORMATION
  Report Type: 
  Country: None (occurrence: None)
  Receive Date: 20071214
  Receipt Date: 20071204
  Transmission Date: 20080405
  Serious: Yes (Other)
  Sender: FDA-Public Use
  Company Number: US-PFIZER INC-2007102463

PATIENT
  Age: 38 Year
  Sex: Female

DRUGS (2)
  1. LYRICA [Suspect]
     Indication: TRIGEMINAL NEURALGIA
     Dosage: DAILY DOSE:300MG
     Dates: start: 20070101, end: 20070101
  2. CYMBALTA [Suspect]
     Dosage: DAILY DOSE:120MG
     Dates: start: 20070101, end: 20070101

REACTIONS (1)
  - CARCINOID SYNDROME [None]
